FAERS Safety Report 7525213-1 (Version None)
Quarter: 2011Q2

REPORT INFORMATION
  Report Type: 
  Country: None (occurrence: None)
  Receive Date: 20110606
  Receipt Date: 20110531
  Transmission Date: 20111010
  Serious: Yes (Other)
  Sender: FDA-Public Use
  Company Number: US-PFIZER INC-2011118370

PATIENT
  Sex: Male

DRUGS (2)
  1. GUAIFENESIN [Suspect]
     Dosage: UNK
  2. ROBITUSSIN COUGH [Suspect]

REACTIONS (3)
  - HAEMORRHAGE [None]
  - MALAISE [None]
  - NEOPLASM MALIGNANT [None]
